FAERS Safety Report 8052195-9 (Version None)
Quarter: 2012Q1

REPORT INFORMATION
  Report Type: 
  Country: None (occurrence: None)
  Receive Date: 20120118
  Receipt Date: 20120116
  Transmission Date: 20120608
  Serious: No
  Sender: FDA-Public Use
  Company Number: US-PFIZER INC-2012012458

PATIENT
  Sex: Female
  Weight: 56.689 kg

DRUGS (11)
  1. NORCO [Concomitant]
     Indication: PAIN
     Dosage: UNK
  2. TRICOR [Concomitant]
     Indication: BLOOD TRIGLYCERIDES INCREASED
     Dosage: UNK
     Dates: start: 20070101
  3. LYRICA [Suspect]
     Indication: INTERVERTEBRAL DISC PROTRUSION
  4. LYRICA [Suspect]
     Indication: RHEUMATOID ARTHRITIS
  5. METHADONE [Concomitant]
     Indication: PAIN
     Dosage: 10 MG, 3X/DAY
  6. XANAX [Suspect]
     Indication: ANXIETY DISORDER
     Dosage: 0.5 MG, 2X/DAY
     Route: 048
  7. ACETAMINOPHEN [Concomitant]
     Indication: PAIN
     Dosage: UNK
  8. SIMVASTATIN [Concomitant]
     Indication: BLOOD CHOLESTEROL INCREASED
     Dosage: UNK
     Dates: start: 20070101
  9. LYRICA [Suspect]
     Indication: BONE DISORDER
  10. LYRICA [Suspect]
     Indication: FIBROMYALGIA
     Dosage: 75 MG, 3X/DAY
     Route: 048
     Dates: start: 20060101, end: 20110801
  11. LYRICA [Suspect]
     Indication: OSTEOARTHRITIS

REACTIONS (5)
  - VOMITING [None]
  - GAIT DISTURBANCE [None]
  - INFLUENZA [None]
  - MALAISE [None]
  - SPEECH DISORDER [None]
